FAERS Safety Report 9171609 (Version 2)
Quarter: 2013Q1

REPORT INFORMATION
  Report Type: Spontaneous
  Country: SI (occurrence: SI)
  Receive Date: 20130319
  Receipt Date: 20130325
  Transmission Date: 20140127
  Serious: Yes (Other)
  Sender: FDA-Public Use
  Company Number: SI-GLAXOSMITHKLINE-B0866344A

PATIENT
  Age: 60 Year
  Sex: Male

DRUGS (1)
  1. ARIXTRA [Suspect]
     Indication: THROMBOPHLEBITIS SUPERFICIAL
     Dosage: 2.5MG PER DAY
     Route: 065

REACTIONS (2)
  - Confusional state [Recovered/Resolved]
  - Mental disorder [Recovered/Resolved]
